FAERS Safety Report 5272828-X (Version None)
Quarter: 2007Q1

REPORT INFORMATION
  Report Type: 
  Country: None (occurrence: None)
  Receive Date: 20070322
  Receipt Date: 20070314
  Transmission Date: 20070707
  Serious: Yes (Other)
  Sender: FDA-Public Use
  Company Number: MW-ABBOTT-07P-100-0361219-00

PATIENT
  Sex: Female

DRUGS (3)
  1. KALETRA [Suspect]
     Indication: PROPHYLAXIS AGAINST HIV INFECTION
     Dosage: 400/100 MG
     Route: 048
     Dates: start: 20060714
  2. LAMIVUDINE + ZIDOVUDINE [Concomitant]
     Indication: PROPHYLAXIS AGAINST HIV INFECTION
     Route: 048
     Dates: start: 20060714
  3. AMOXICILLIN TRIHYDRATE [Concomitant]
     Indication: EPISIOTOMY
     Route: 048
     Dates: start: 20060720, end: 20060727

REACTIONS (3)
  - DRUG EXPOSURE DURING PREGNANCY [None]
  - NEUTROPENIA [None]
  - PROCEDURAL PAIN [None]
